FAERS Safety Report 20996199 (Version 1)
Quarter: 2022Q2

REPORT INFORMATION
  Report Type: Spontaneous
  Country: US (occurrence: US)
  Receive Date: 20220623
  Receipt Date: 20220623
  Transmission Date: 20220721
  Serious: Yes (Other)
  Sender: FDA-Public Use
  Company Number: US-PURDUE-USA-2020-0224527

PATIENT
  Sex: Female

DRUGS (2)
  1. HYDROCODONE BITARTRATE AND ACETAMINOPHEN [Suspect]
     Active Substance: ACETAMINOPHEN\HYDROCODONE BITARTRATE
     Indication: Back pain
     Dosage: UNK
     Route: 048
  2. HYDROCODONE [Suspect]
     Active Substance: HYDROCODONE
     Indication: Back pain
     Dosage: UNK
     Route: 065

REACTIONS (11)
  - Drug dependence [Unknown]
  - Balance disorder [Unknown]
  - Vision blurred [Unknown]
  - Learning disability [Unknown]
  - Confusional state [None]
  - Mood altered [Unknown]
  - Unevaluable event [Unknown]
  - Muscle twitching [Unknown]
  - Fatigue [Unknown]
  - Memory impairment [Unknown]
  - Skin disorder [Unknown]
